FAERS Safety Report 17646198 (Version 1)
Quarter: 2020Q2

REPORT INFORMATION
  Report Type: Report from Study
  Country: US (occurrence: US)
  Receive Date: 20200408
  Receipt Date: 20200408
  Transmission Date: 20200713
  Serious: Yes (Other)
  Sender: FDA-Public Use
  Company Number: US-AMGEN-USASL2020011771

PATIENT
  Age: 47 Year
  Sex: Male

DRUGS (2)
  1. REPATHA [Suspect]
     Active Substance: EVOLOCUMAB
     Indication: HYPERLIPIDAEMIA
  2. REPATHA [Suspect]
     Active Substance: EVOLOCUMAB
     Indication: HYPERCHOLESTEROLAEMIA
     Dosage: 140 MILLIGRAM, Q2WK
     Route: 065

REACTIONS (7)
  - Rhabdomyolysis [Unknown]
  - Blood triglycerides increased [Unknown]
  - Oropharyngeal pain [Unknown]
  - Injection site bruising [Unknown]
  - Neuroleptic malignant syndrome [Unknown]
  - Injection site pain [Unknown]
  - Wrong technique in product usage process [Unknown]
